FAERS Safety Report 9513335 (Version 1)
Quarter: 2013Q1

REPORT INFORMATION
  Report Type: Spontaneous
  Country: US (occurrence: None)
  Receive Date: 20130305
  Receipt Date: 20130305
  Transmission Date: 20140127
  Serious: Yes (Other)
  Sender: FDA-Public Use
  Company Number: 163-21880-12042442

PATIENT
  Age: 81 Year
  Sex: Female
  Weight: 76.66 kg

DRUGS (6)
  1. REVLIMID [Suspect]
     Indication: PLASMA CELL MYELOMA
     Dosage: 5 MG, Q EVENING X 21 DAYS
     Route: 048
     Dates: start: 201202
  2. ADVAIR (SERETIDE MITE) [Concomitant]
  3. ASPIRIN (ACETYLSALICYLIC ACID) [Concomitant]
  4. TRAMADOL (TRAMADOL) [Concomitant]
  5. VITAMIN B12 (CYANOCOBALAMIN) [Concomitant]
  6. AVAPRO (IRBESARTAN) [Concomitant]

REACTIONS (1)
  - Anaemia [None]
